FAERS Safety Report 4751725-X (Version None)
Quarter: 2005Q3

REPORT INFORMATION
  Report Type: 
  Country: None (occurrence: None)
  Receive Date: 20050822
  Receipt Date: 20050822
  Transmission Date: 20060218
  Serious: Yes (Congenital Anomaly)
  Sender: FDA-Public Use
  Company Number: None

PATIENT
  Age: 1 Day
  Sex: Male
  Weight: 3.8057 kg

DRUGS (2)
  1. UNISOM [Suspect]
     Indication: NAUSEA
     Dosage: HALF A PILL   ONCE A DAY   PO
     Route: 048
     Dates: start: 20040301, end: 20040501
  2. UNISOM [Suspect]
     Indication: PREGNANCY
     Dosage: HALF A PILL   ONCE A DAY   PO
     Route: 048
     Dates: start: 20040301, end: 20040501

REACTIONS (3)
  - ANOMALY OF EXTERNAL EAR CONGENITAL [None]
  - CONGENITAL GENITAL MALFORMATION MALE [None]
  - DRUG EXPOSURE DURING PREGNANCY [None]
